FAERS Safety Report 21994879 (Version 6)
Quarter: 2024Q4

REPORT INFORMATION
  Report Type: Report from Study
  Country: DE (occurrence: DE)
  Receive Date: 20230215
  Receipt Date: 20241015
  Transmission Date: 20250115
  Serious: Yes (Death, Life-Threatening, Hospitalization, Other)
  Sender: PFIZER
  Company Number: DE-JNJFOC-20230164704

PATIENT
  Age: 72 Year
  Sex: Male
  Weight: 65 kg

DRUGS (13)
  1. BORTEZOMIB [Suspect]
     Active Substance: BORTEZOMIB
     Indication: Plasma cell myeloma
     Dosage: AS A PART OF FIRST CYCLE OF TREATMENT
     Route: 058
     Dates: start: 20221117
  2. BORTEZOMIB [Suspect]
     Active Substance: BORTEZOMIB
     Dosage: UNK
     Route: 058
     Dates: start: 20221228, end: 20230101
  3. BORTEZOMIB [Suspect]
     Active Substance: BORTEZOMIB
     Dosage: UNK
     Route: 058
     Dates: start: 20230204
  4. DARZALEX [Suspect]
     Active Substance: DARATUMUMAB
     Indication: Plasma cell myeloma
     Dosage: AS A PART OF FIRST CYCLE OF TREATMENT
     Route: 042
     Dates: start: 20221117
  5. DARZALEX [Suspect]
     Active Substance: DARATUMUMAB
     Dosage: UNK
     Route: 042
     Dates: start: 20221212
  6. DARZALEX [Suspect]
     Active Substance: DARATUMUMAB
     Dosage: UNK
     Route: 042
     Dates: start: 20230204
  7. CYCLOPHOSPHAMIDE [Suspect]
     Active Substance: CYCLOPHOSPHAMIDE
     Indication: Plasma cell myeloma
     Dosage: UNK
     Route: 065
  8. ETOPOSIDE [Suspect]
     Active Substance: ETOPOSIDE
     Indication: Plasma cell myeloma
     Dosage: UNK
     Route: 065
  9. CARFILZOMIB [Suspect]
     Active Substance: CARFILZOMIB
     Indication: Plasma cell myeloma
     Dosage: UNK
     Route: 065
  10. DOXORUBICIN [Suspect]
     Active Substance: DOXORUBICIN
     Indication: Plasma cell myeloma
     Dosage: UNK
     Route: 065
  11. THALIDOMIDE [Suspect]
     Active Substance: THALIDOMIDE
     Dosage: UNK
     Route: 065
  12. POMALIDOMIDE [Suspect]
     Active Substance: POMALIDOMIDE
     Dosage: AS A PART OF FIRST CYCLE OF TREATMENT
     Route: 065
  13. DEXAMETHASONE [Suspect]
     Active Substance: DEXAMETHASONE
     Indication: Sepsis
     Dosage: UNK
     Dates: start: 20230320, end: 20230320

REACTIONS (11)
  - Sepsis [Fatal]
  - Bacterial sepsis [Fatal]
  - Device related sepsis [Unknown]
  - Febrile bone marrow aplasia [Recovered/Resolved]
  - Renal failure [Not Recovered/Not Resolved]
  - Pulmonary oedema [Recovered/Resolved]
  - Multiple organ dysfunction syndrome [Unknown]
  - Depressed level of consciousness [Unknown]
  - Hypertension [Not Recovered/Not Resolved]
  - Tachycardia [Unknown]
  - Tachypnoea [Unknown]

NARRATIVE: CASE EVENT DATE: 20221218
